FAERS Safety Report 15556784 (Version 1)
Quarter: 2018Q4

REPORT INFORMATION
  Report Type: Spontaneous
  Country: PT (occurrence: PT)
  Receive Date: 20181026
  Receipt Date: 20181026
  Transmission Date: 20190205
  Serious: Yes (Hospitalization, Other)
  Sender: FDA-Public Use
  Company Number: PT-ASTRAZENECA-2018SF37733

PATIENT
  Age: 65 Year
  Sex: Female

DRUGS (16)
  1. MIRTAZAPINE. [Suspect]
     Active Substance: MIRTAZAPINE
     Indication: PRODUCT USED FOR UNKNOWN INDICATION
     Route: 065
  2. RITUXIMAB. [Suspect]
     Active Substance: RITUXIMAB
     Dosage: 6 CYCLES
     Route: 065
     Dates: start: 2014
  3. CISPLATIN. [Suspect]
     Active Substance: CISPLATIN
     Indication: B-CELL LYMPHOMA
     Dosage: 4 CYCLES
     Route: 065
     Dates: start: 201509, end: 201601
  4. OMEPRAZOLE. [Suspect]
     Active Substance: OMEPRAZOLE
     Indication: PRODUCT USED FOR UNKNOWN INDICATION
     Route: 048
  5. PREDNISOLONE. [Suspect]
     Active Substance: PREDNISOLONE
     Indication: B-CELL LYMPHOMA
     Dosage: 6 CYCLES
     Route: 065
     Dates: start: 2014
  6. BENDAMUSTINE [Suspect]
     Active Substance: BENDAMUSTINE
     Indication: B-CELL LYMPHOMA
     Dosage: 4 CYLCLES
     Route: 065
     Dates: start: 201703, end: 201706
  7. CYCLOPHOSPHAMIDE. [Suspect]
     Active Substance: CYCLOPHOSPHAMIDE
     Indication: B-CELL LYMPHOMA
     Dosage: 6 CYCLES
     Route: 065
     Dates: start: 2014
  8. VINCRISTINE [Suspect]
     Active Substance: VINCRISTINE
     Indication: B-CELL LYMPHOMA
     Dosage: 6 CYCLES
     Route: 065
     Dates: start: 2014
  9. METHYLPREDNISOLONE. [Suspect]
     Active Substance: METHYLPREDNISOLONE
     Indication: B-CELL LYMPHOMA
     Dosage: 4 CYCLES
     Route: 065
     Dates: start: 201509, end: 201601
  10. OBINUTUZUMAB. [Suspect]
     Active Substance: OBINUTUZUMAB
     Dosage: 2 CYCLES
     Route: 065
     Dates: start: 201708, end: 201709
  11. SERTRALINE [Suspect]
     Active Substance: SERTRALINE HYDROCHLORIDE
     Indication: PRODUCT USED FOR UNKNOWN INDICATION
     Route: 065
  12. DOXORUBICIN [Suspect]
     Active Substance: DOXORUBICIN
     Indication: B-CELL LYMPHOMA
     Dosage: 6 CYCLES
     Route: 065
     Dates: start: 2014
  13. VINORELBINE [Suspect]
     Active Substance: VINORELBINE\VINORELBINE TARTRATE
     Indication: B-CELL LYMPHOMA
     Route: 065
     Dates: start: 201603, end: 201610
  14. ETOPOSIDE. [Suspect]
     Active Substance: ETOPOSIDE
     Indication: B-CELL LYMPHOMA
     Dosage: 4 CYCLES
     Route: 065
     Dates: start: 201509, end: 201601
  15. GEMCITABINE [Suspect]
     Active Substance: GEMCITABINE\GEMCITABINE HYDROCHLORIDE
     Indication: B-CELL LYMPHOMA
     Route: 065
     Dates: start: 201603, end: 201610
  16. CYTARABINE. [Suspect]
     Active Substance: CYTARABINE
     Indication: B-CELL LYMPHOMA
     Dosage: 4 CYCLES
     Route: 065
     Dates: start: 201509, end: 201601

REACTIONS (10)
  - Urinary tract infection bacterial [Unknown]
  - Depression [Unknown]
  - Herpes zoster [Unknown]
  - Non-Hodgkin^s lymphoma recurrent [Unknown]
  - Febrile neutropenia [Unknown]
  - Psychotic disorder [Unknown]
  - Pneumonia [Unknown]
  - Suicide attempt [Unknown]
  - Influenza [Unknown]
  - Cough [Unknown]

NARRATIVE: CASE EVENT DATE: 201409
